FAERS Safety Report 4575741-6 (Version None)
Quarter: 2005Q1

REPORT INFORMATION
  Report Type: 
  Country: None (occurrence: None)
  Receive Date: 20050209
  Receipt Date: 20050126
  Transmission Date: 20050727
  Serious: Yes (Other)
  Sender: FDA-Public Use
  Company Number: US-GLAXOSMITHKLINE-A0542555A

PATIENT
  Age: 49 Year
  Sex: Female
  Weight: 59.1 kg

DRUGS (4)
  1. NICODERM CQ [Suspect]
     Indication: EX-SMOKER
     Route: 062
     Dates: start: 20050101, end: 20050101
  2. LORTAB [Concomitant]
     Indication: OSTEOARTHRITIS
  3. XANAX [Concomitant]
     Indication: OSTEOARTHRITIS
  4. NEURONTIN [Concomitant]
     Indication: OSTEOARTHRITIS

REACTIONS (9)
  - APPLICATION SITE PRURITUS [None]
  - APPLICATION SITE URTICARIA [None]
  - CONFUSIONAL STATE [None]
  - CONVULSION [None]
  - DISORIENTATION [None]
  - HALLUCINATION [None]
  - LOSS OF CONSCIOUSNESS [None]
  - PRURITUS GENERALISED [None]
  - SOMNOLENCE [None]
